FAERS Safety Report 6546315-2 (Version None)
Quarter: 2010Q1

REPORT INFORMATION
  Report Type: 
  Country: None (occurrence: None)
  Receive Date: 20100119
  Receipt Date: 20100114
  Transmission Date: 20100710
  Serious: Yes (Death)
  Sender: FDA-Public Use
  Company Number: 2009029246

PATIENT
  Age: 28 Year
  Sex: Male

DRUGS (10)
  1. NUVIGIL [Suspect]
     Indication: FATIGUE
     Dosage: ORAL
     Route: 048
     Dates: start: 20090901
  2. KLONOPIN [Concomitant]
  3. WELLBUTRIN [Concomitant]
  4. NICOTROL (NICOTINE) (10 MILLIGRAM) [Concomitant]
  5. CAMPRAL [Concomitant]
  6. MOBIC [Concomitant]
  7. CYMBALTA [Concomitant]
  8. AMBIEN CR [Concomitant]
  9. VIAGRA [Concomitant]
  10. VALIUM [Concomitant]

REACTIONS (1)
  - DEATH [None]
